FAERS Safety Report 5448146-3 (Version None)
Quarter: 2007Q3

REPORT INFORMATION
  Report Type: 
  Country: None (occurrence: None)
  Receive Date: 20070803
  Receipt Date: 20070507
  Transmission Date: 20080115
  Serious: No
  Sender: FDA-Public Use
  Company Number: 200711446BWH

PATIENT
  Age: 47 Year
  Sex: Male

DRUGS (3)
  1. NEXAVAR [Suspect]
     Indication: MALIGNANT MELANOMA
     Dosage: 400 MG, BID, ORAL
     Route: 048
     Dates: start: 20070323
  2. TEMODAR [Suspect]
  3. COMPAZINE [Concomitant]

REACTIONS (1)
  - DIARRHOEA [None]
